FAERS Safety Report 5010275-6 (Version None)
Quarter: 2006Q2

REPORT INFORMATION
  Report Type: 
  Country: None (occurrence: None)
  Receive Date: 20060404
  Receipt Date: 20060104
  Transmission Date: 20061013
  Serious: Yes (Other)
  Sender: FDA-Public Use
  Company Number: US200512002071

PATIENT
  Age: 57 Year
  Sex: Male
  Weight: 66.7 kg

DRUGS (2)
  1. CYMBALTA [Suspect]
     Indication: MAJOR DEPRESSION
     Dosage: 30 MG
     Dates: start: 20051130, end: 20051205
  2. BUSPAR /AUS/ (BUSPIRONE HYDROCHLORIDE) [Concomitant]

REACTIONS (2)
  - BLOOD SODIUM DECREASED [None]
  - HYPERSENSITIVITY [None]
